FAERS Safety Report 10760814 (Version 1)
Quarter: 2015Q1

REPORT INFORMATION
  Report Type: Spontaneous
  Country: US (occurrence: None)
  Receive Date: 20150203
  Receipt Date: 20150203
  Transmission Date: 20150721
  Serious: No
  Sender: FDA-Public Use
  Company Number: None

PATIENT
  Age: 48 Year
  Sex: Male
  Weight: 78.02 kg

DRUGS (1)
  1. COPAXONE [Suspect]
     Active Substance: GLATIRAMER ACETATE
     Indication: MULTIPLE SCLEROSIS
     Dosage: INJECT COPAXONE 3 TIMES PER WE, 3 TIMES PER WEEK, UPPER RIGHT ARM
     Dates: start: 20150120

REACTIONS (1)
  - Injection site necrosis [None]

NARRATIVE: CASE EVENT DATE: 20150120
